FAERS Safety Report 8010872-X (Version None)
Quarter: 2011Q4

REPORT INFORMATION
  Report Type: 
  Country: None (occurrence: None)
  Receive Date: 20111228
  Receipt Date: 20111215
  Transmission Date: 20120403
  Serious: Yes (Hospitalization, Other)
  Sender: FDA-Public Use
  Company Number: US-ELI_LILLY_AND_COMPANY-US201112005241

PATIENT
  Sex: Female

DRUGS (11)
  1. ZANAFLEX [Concomitant]
     Dosage: 1 DF, EVERY 8 HRS
  2. CRESTOR [Concomitant]
     Dosage: 50 MG, EACH EVENING
  3. SYNTHROID [Concomitant]
     Dosage: 50 MG, UNK
  4. TOPAMAX [Concomitant]
     Dosage: 100 MG, QOD
  5. INSULIN [Concomitant]
     Dosage: 20 IU, QD
  6. ATENOLOL [Concomitant]
  7. FORTEO [Suspect]
     Indication: OSTEOPOROSIS
     Dosage: 20 UG, QD
     Dates: start: 20111101
  8. VERAPAMIL [Concomitant]
     Dosage: 180 MG, QD
  9. LEXAPRO [Concomitant]
     Dosage: 20 MG, QD
  10. METFORMIN HCL [Concomitant]
     Dosage: 500 MG, EACH EVENING
  11. AMBIEN [Concomitant]
     Dosage: 10 MG, QD

REACTIONS (4)
  - FALL [None]
  - HEART RATE IRREGULAR [None]
  - CARDIAC DISCOMFORT [None]
  - CARDIAC DISORDER [None]
